FAERS Safety Report 4558152-9 (Version None)
Quarter: 2005Q1

REPORT INFORMATION
  Report Type: 
  Country: None (occurrence: None)
  Receive Date: 20050103
  Receipt Date: 20040922
  Transmission Date: 20050727
  Serious: Yes (Other)
  Sender: FDA-Public Use
  Company Number: 2004UW19743

PATIENT
  Age: 80 Year
  Sex: Male
  Weight: 78.4723 kg

DRUGS (5)
  1. CRESTOR [Suspect]
     Indication: HYPERCHOLESTEROLAEMIA
     Dosage: 10 MG PO
     Route: 048
  2. GENERIC AXID [Concomitant]
  3. ASPIRIN [Concomitant]
  4. VITAMIN E [Concomitant]
  5. M.V.I. [Concomitant]

REACTIONS (3)
  - EYE DISCHARGE [None]
  - JOINT STIFFNESS [None]
  - OEDEMA PERIPHERAL [None]
